FAERS Safety Report 6896388-2 (Version None)
Quarter: 2010Q3

REPORT INFORMATION
  Report Type: 
  Country: None (occurrence: None)
  Receive Date: 20100802
  Receipt Date: 20090210
  Transmission Date: 20110219
  Serious: No
  Sender: FDA-Public Use
  Company Number: US-PFIZER INC-2009168108

PATIENT
  Sex: Female
  Weight: 65.8 kg

DRUGS (5)
  1. GABAPENTIN [Suspect]
     Indication: PANIC ATTACK
     Dosage: 100 MG, 3X/DAY
     Dates: start: 20090208
  2. GABAPENTIN [Suspect]
     Indication: ANXIETY
  3. GABAPENTIN [Suspect]
     Indication: STRESS
  4. ZOLPIDEM [Concomitant]
     Dosage: 10 MG, EVERY NIGHT
  5. LORAZEPAM [Concomitant]
     Dosage: 1 MG, 2X/DAY

REACTIONS (1)
  - DIARRHOEA [None]
